FAERS Safety Report 9310582 (Version 1)
Quarter: 2013Q2

REPORT INFORMATION
  Report Type: Spontaneous
  Country: US (occurrence: US)
  Receive Date: 20130527
  Receipt Date: 20130527
  Transmission Date: 20140414
  Serious: No
  Sender: FDA-Public Use
  Company Number: US-PFIZER INC-2013158494

PATIENT
  Age: 12 Year
  Sex: Male
  Weight: 45.35 kg

DRUGS (1)
  1. ADVIL [Suspect]
     Indication: PYREXIA
     Dosage: 200 MG, TWO TIMES A DAY
     Dates: start: 20130520

REACTIONS (1)
  - Logorrhoea [Unknown]
